FAERS Safety Report 10485646 (Version 1)
Quarter: 2014Q4

REPORT INFORMATION
  Report Type: Spontaneous
  Country: DK (occurrence: DK)
  Receive Date: 20141001
  Receipt Date: 20141001
  Transmission Date: 20150528
  Serious: Yes (Other)
  Sender: FDA-Public Use
  Company Number: PHHY2014DK124559

PATIENT
  Age: 26 Year
  Sex: Female

DRUGS (3)
  1. DALACIN [Concomitant]
     Active Substance: CLINDAMYCIN\CLINDAMYCIN PHOSPHATE
  2. BIOCLAVID [Suspect]
     Active Substance: AMOXICILLIN\CLAVULANIC ACID
     Indication: INFECTION
     Dosage: 2 DF, UNK
     Route: 048
     Dates: start: 20140729, end: 20140801
  3. IBUMETIN [Concomitant]
     Active Substance: IBUPROFEN
     Route: 048
     Dates: start: 20140729

REACTIONS (6)
  - Alopecia [Recovered/Resolved]
  - Erythema [Recovered/Resolved]
  - Swelling face [Recovered/Resolved]
  - Rash macular [Recovered/Resolved]
  - Pruritus [Recovered/Resolved]
  - Swelling [Recovered/Resolved]

NARRATIVE: CASE EVENT DATE: 20140801
